FAERS Safety Report 7857872-8 (Version None)
Quarter: 2011Q4

REPORT INFORMATION
  Report Type: 
  Country: None (occurrence: None)
  Receive Date: 20111027
  Receipt Date: 20110223
  Transmission Date: 20120403
  Serious: No
  Sender: FDA-Public Use
  Company Number: US-BAYER-2011-017885

PATIENT
  Sex: Female
  Weight: 68 kg

DRUGS (2)
  1. ALEVE (CAPLET) [Suspect]
     Indication: ANALGESIC THERAPY
     Dosage: DAILY DOSE 2 DF
     Route: 048
     Dates: start: 20110222, end: 20110222
  2. SYNTHROID [Concomitant]

REACTIONS (2)
  - SWELLING FACE [None]
  - PALPITATIONS [None]
